FAERS Safety Report 5240065-0 (Version None)
Quarter: 2007Q1

REPORT INFORMATION
  Report Type: 
  Country: None (occurrence: None)
  Receive Date: 20070216
  Receipt Date: 20070205
  Transmission Date: 20070707
  Serious: Yes (Hospitalization, Other)
  Sender: FDA-Public Use
  Company Number: US-PFIZER INC-2007009767

PATIENT
  Sex: Male
  Weight: 88.5 kg

DRUGS (3)
  1. LIPITOR [Suspect]
     Dates: start: 20010301, end: 20011029
  2. ALL OTHER THERAPEUTIC PRODUCTS [Concomitant]
  3. NEXIUM [Concomitant]

REACTIONS (11)
  - ABDOMINAL DISTENSION [None]
  - CHEST DISCOMFORT [None]
  - CRYING [None]
  - DIARRHOEA [None]
  - EMOTIONAL DISTRESS [None]
  - FLATULENCE [None]
  - GASTRIC ULCER [None]
  - HEART RATE IRREGULAR [None]
  - HIATUS HERNIA [None]
  - OVERDOSE [None]
  - WEIGHT INCREASED [None]
